FAERS Safety Report 11269624 (Version 1)
Quarter: 2015Q3

REPORT INFORMATION
  Report Type: Spontaneous
  Country: US (occurrence: US)
  Receive Date: 20150714
  Receipt Date: 20150714
  Transmission Date: 20151125
  Serious: Yes (Hospitalization, Disabling, Other)
  Sender: FDA-Public Use
  Company Number: US-ACTAVIS-2015-13675

PATIENT
  Age: 3 Year
  Sex: Male

DRUGS (1)
  1. BUPRENORPHINE HYDROCHLORIDE (AELLC) [Suspect]
     Active Substance: BUPRENORPHINE HYDROCHLORIDE
     Indication: PRODUCT USED FOR UNKNOWN INDICATION
     Dosage: 1 PILL, SINGLE DOSE
     Route: 048
     Dates: start: 20140522, end: 20140522

REACTIONS (11)
  - Accidental overdose [Recovered/Resolved with Sequelae]
  - Somnolence [Unknown]
  - Pyrexia [Unknown]
  - Accidental exposure to product by child [Recovered/Resolved with Sequelae]
  - Paralysis [Unknown]
  - Seizure [Unknown]
  - Vomiting [Unknown]
  - Aphasia [Not Recovered/Not Resolved]
  - Brain injury [Recovered/Resolved with Sequelae]
  - Wheelchair user [Not Recovered/Not Resolved]
  - Disability [Not Recovered/Not Resolved]

NARRATIVE: CASE EVENT DATE: 2014
